FAERS Safety Report 5004750-8 (Version None)
Quarter: 2006Q1

REPORT INFORMATION
  Report Type: 
  Country: None (occurrence: None)
  Receive Date: 20060321
  Receipt Date: 20051129
  Transmission Date: 20060701
  Serious: No
  Sender: FDA-Public Use
  Company Number: YPA20050615

PATIENT
  Age: 64 Year
  Sex: Male

DRUGS (1)
  1. VESICARE [Suspect]
     Indication: HYPERTONIC BLADDER
     Dosage: 10 MG, UID/QD, ORAL
     Route: 048
     Dates: start: 20050901

REACTIONS (1)
  - BACK PAIN [None]
